FAERS Safety Report 9770370 (Version 1)
Quarter: 2013Q4

REPORT INFORMATION
  Report Type: Spontaneous
  Country: IT (occurrence: IT)
  Receive Date: 20131218
  Receipt Date: 20131218
  Transmission Date: 20140711
  Serious: Yes (Other)
  Sender: FDA-Public Use
  Company Number: IT-BAYER-2013-150655

PATIENT
  Age: 31 Year
  Sex: Female

DRUGS (3)
  1. ACETYLSALICYLIC ACID({=100 MG) [Suspect]
     Indication: THROMBOSIS PROPHYLAXIS
     Dosage: 100 MG/DAY
  2. BETAMETHASONE [Concomitant]
     Indication: HEART BLOCK CONGENITAL
     Dosage: 4 MG, QD
     Route: 048
  3. IMMUNOGLOBULIN [Concomitant]
     Indication: HEART BLOCK CONGENITAL
     Dosage: 1 KG, QD
     Route: 042

REACTIONS (2)
  - Caesarean section [None]
  - Maternal exposure during pregnancy [None]
